FAERS Safety Report 6244262-7 (Version None)
Quarter: 2009Q2

REPORT INFORMATION
  Report Type: 
  Country: None (occurrence: None)
  Receive Date: 20090625
  Receipt Date: 20080619
  Transmission Date: 20091009
  Serious: No
  Sender: FDA-Public Use
  Company Number: US-KINGPHARMUSA00001-K200800724

PATIENT
  Age: 49 Year
  Sex: Male

DRUGS (1)
  1. BICILLIN L-A [Suspect]
     Dosage: UNK, UNK
     Route: 030
     Dates: start: 20080531

REACTIONS (3)
  - CHILLS [None]
  - INJECTION SITE PAIN [None]
  - INSOMNIA [None]
